FAERS Safety Report 11840940 (Version 2)
Quarter: 2016Q1

REPORT INFORMATION
  Report Type: Spontaneous
  Country: US (occurrence: US)
  Receive Date: 20151216
  Receipt Date: 20160105
  Transmission Date: 20160525
  Serious: No
  Sender: FDA-Public Use
  Company Number: US-GLAXOSMITHKLINE-US2015GSK175002

PATIENT
  Age: 79 Year
  Sex: Female

DRUGS (2)
  1. AZITHROMYCIN ANHYDROUS. [Concomitant]
     Active Substance: AZITHROMYCIN ANHYDROUS
     Dosage: 250 MG, QD (TAKE AT NOON)
  2. ANORO ELLIPTA [Suspect]
     Active Substance: UMECLIDINIUM BROMIDE\VILANTEROL TRIFENATATE
     Indication: PRODUCT USED FOR UNKNOWN INDICATION
     Dosage: UNK, QD (IN THE EVENING)
     Dates: start: 20151202, end: 20151204

REACTIONS (4)
  - Condition aggravated [Unknown]
  - Choking sensation [Unknown]
  - Cough [Unknown]
  - Dysgeusia [Unknown]

NARRATIVE: CASE EVENT DATE: 20151202
